FAERS Safety Report 17715333 (Version 1)
Quarter: 2020Q2

REPORT INFORMATION
  Report Type: Spontaneous
  Country: CO (occurrence: CO)
  Receive Date: 20200427
  Receipt Date: 20200427
  Transmission Date: 20200714
  Serious: Yes (Other)
  Sender: FDA-Public Use
  Company Number: CO-US-PROVELL PHARMACEUTICALS LLC-9155926

PATIENT
  Age: 28 Year
  Sex: Female

DRUGS (1)
  1. LEVOTHYROXINE. [Suspect]
     Active Substance: LEVOTHYROXINE
     Indication: HYPOTHYROIDISM
     Dosage: 50 UNSPECIFIED UNITS
     Route: 048
     Dates: start: 2019, end: 20200130

REACTIONS (4)
  - Live birth [Recovered/Resolved]
  - Prolonged labour [Recovered/Resolved]
  - Maternal exposure during pregnancy [Recovered/Resolved]
  - Meconium stain [Recovered/Resolved]

NARRATIVE: CASE EVENT DATE: 201904
